FAERS Safety Report 9726203 (Version 2)
Quarter: 2014Q1

REPORT INFORMATION
  Report Type: Spontaneous
  Country: US (occurrence: US)
  Receive Date: 20131203
  Receipt Date: 20140226
  Transmission Date: 20141002
  Serious: Yes (Hospitalization, Other)
  Sender: FDA-Public Use
  Company Number: US-BAYER-2013-144922

PATIENT
  Age: 23 Year
  Sex: Female
  Weight: 54.42 kg

DRUGS (4)
  1. MIRENA [Suspect]
     Indication: CONTRACEPTION
     Dosage: 20 MCG/24HR, CONT
     Route: 015
     Dates: start: 201203
  2. MIRENA [Suspect]
     Indication: MENORRHAGIA
  3. PERCOCET [Concomitant]
     Indication: PAIN
     Dosage: 5/325 MG 1 [TO] 2 PO Q (BY MOUTH, EVERY) 4 [TO] 6 HOURS AS NEEDED
     Route: 048
  4. ANAPROX DS [Concomitant]
     Indication: PAIN
     Dosage: Q 8 HOURS AS NEEDED
     Route: 048

REACTIONS (8)
  - Uterine perforation [None]
  - Injury [None]
  - Anxiety [None]
  - Ovarian cyst [None]
  - Genital haemorrhage [None]
  - Dyspareunia [None]
  - Dizziness [None]
  - Device issue [None]
